FAERS Safety Report 8839483 (Version 1)
Quarter: 2012Q4

REPORT INFORMATION
  Report Type: Spontaneous
  Country: US (occurrence: None)
  Receive Date: 20121012
  Receipt Date: 20121012
  Transmission Date: 20130627
  Serious: Yes (Other)
  Sender: FDA-Public Use
  Company Number: None

PATIENT
  Age: 53 Year
  Sex: Female
  Weight: 58.97 kg

DRUGS (2)
  1. EVISTA [Suspect]
     Indication: POSTMENOPAUSE
     Dosage: 60 mg  1/day  po
     Route: 048
  2. EVISTA [Suspect]
     Indication: OSTEOPOROSIS
     Dosage: 60 mg  1/day  po
     Route: 048

REACTIONS (6)
  - Arthralgia [None]
  - Gait disturbance [None]
  - Pain in extremity [None]
  - Multiple sclerosis [None]
  - Asthenia [None]
  - Activities of daily living impaired [None]
